FAERS Safety Report 24160526 (Version 1)
Quarter: 2024Q3

REPORT INFORMATION
  Report Type: Spontaneous
  Country: US (occurrence: US)
  Receive Date: 20240801
  Receipt Date: 20240801
  Transmission Date: 20241017
  Serious: No
  Sender: IRONSHORE PHARMA
  Company Number: US-IRONSHORE PHARMACEUTICALS INC. (IPA)-JOR-2023-000139

PATIENT
  Age: 7 Year
  Sex: Male

DRUGS (1)
  1. JORNAY PM EXTENDED-RELEASE [Suspect]
     Active Substance: METHYLPHENIDATE HYDROCHLORIDE
     Indication: Attention deficit hyperactivity disorder
     Dosage: 60 MILLIGRAM, QD
     Route: 048
     Dates: start: 20230906

REACTIONS (2)
  - Condition aggravated [Recovered/Resolved]
  - Aggression [Recovered/Resolved]

NARRATIVE: CASE EVENT DATE: 20230906
